FAERS Safety Report 9234893 (Version 4)
Quarter: 2013Q2

REPORT INFORMATION
  Report Type: Report from Study
  Country: ES (occurrence: ES)
  Receive Date: 20130416
  Receipt Date: 20130607
  Transmission Date: 20140414
  Serious: Yes (Hospitalization)
  Sender: FDA-Public Use
  Company Number: ES-PFIZER INC-2013113994

PATIENT
  Age: 50 Year
  Sex: Male

DRUGS (10)
  1. BOSUTINIB [Suspect]
     Indication: CHRONIC MYELOID LEUKAEMIA
     Dosage: 400 MG, 1X/DAY
     Route: 048
     Dates: start: 20130222
  2. BOSUTINIB [Suspect]
     Indication: CHROMOSOME ANALYSIS ABNORMAL
  3. ADIRO [Concomitant]
     Indication: MYOCARDIAL INFARCTION
     Dosage: UNK
  4. PANTOPRAZOL [Concomitant]
     Indication: GASTRITIS PROPHYLAXIS
     Dosage: UNK
  5. PLAVIX [Concomitant]
     Indication: MYOCARDIAL INFARCTION
     Dosage: UNK
  6. BISOPROLOL [Concomitant]
     Indication: MYOCARDIAL INFARCTION
     Dosage: UNK
  7. NORVASC [Concomitant]
     Indication: MYOCARDIAL INFARCTION
     Dosage: UNK
  8. ATORVASTATIN [Concomitant]
     Indication: MYOCARDIAL INFARCTION
     Dosage: UNK
  9. ELECOR [Concomitant]
     Indication: MYOCARDIAL INFARCTION
     Dosage: UNK
  10. SEGURIL [Concomitant]
     Indication: MYOCARDIAL INFARCTION
     Dosage: UNK

REACTIONS (1)
  - Cardiac failure congestive [Recovered/Resolved]
